FAERS Safety Report 14464355 (Version 3)
Quarter: 2018Q2

REPORT INFORMATION
  Report Type: Spontaneous
  Country: US (occurrence: US)
  Receive Date: 20180130
  Receipt Date: 20180410
  Transmission Date: 20180711
  Serious: Yes (Hospitalization, Other)
  Sender: FDA-Public Use
  Company Number: US-GLAXOSMITHKLINE-US2018015516

PATIENT
  Age: 61 Year
  Sex: Female

DRUGS (14)
  1. BREO ELLIPTA [Suspect]
     Active Substance: FLUTICASONE FUROATE\VILANTEROL TRIFENATATE
     Dosage: UNK
  2. VENTOLIN HFA [Suspect]
     Active Substance: ALBUTEROL SULFATE
     Dosage: UNK
  3. INFLUENZA VACCINE [Suspect]
     Active Substance: INFLUENZA VIRUS VACCINE
  4. DOXYCYCLINE HYCLATE. [Concomitant]
     Active Substance: DOXYCYCLINE HYCLATE
  5. VENTOLIN HFA [Suspect]
     Active Substance: ALBUTEROL SULFATE
     Indication: CHRONIC OBSTRUCTIVE PULMONARY DISEASE
     Dosage: UNK
     Route: 055
     Dates: start: 2011
  6. ALBUTEROL NEBULIZER [Concomitant]
     Active Substance: ALBUTEROL
  7. MUCINEX [Concomitant]
     Active Substance: GUAIFENESIN
  8. SPIRIVA [Concomitant]
     Active Substance: TIOTROPIUM BROMIDE MONOHYDRATE
  9. XANAX [Concomitant]
     Active Substance: ALPRAZOLAM
  10. DALIRESP [Concomitant]
     Active Substance: ROFLUMILAST
  11. BREO ELLIPTA [Suspect]
     Active Substance: FLUTICASONE FUROATE\VILANTEROL TRIFENATATE
     Indication: CHRONIC OBSTRUCTIVE PULMONARY DISEASE
     Dosage: 1 PUFF(S), QD
     Route: 055
     Dates: start: 20170404
  12. ANORO ELLIPTA [Suspect]
     Active Substance: UMECLIDINIUM BROMIDE\VILANTEROL TRIFENATATE
     Indication: PRODUCT USED FOR UNKNOWN INDICATION
  13. SPIRIVA RESPIMAT [Concomitant]
     Active Substance: TIOTROPIUM BROMIDE
  14. PREDNISONE. [Concomitant]
     Active Substance: PREDNISONE

REACTIONS (27)
  - Candida infection [Unknown]
  - Off label use [Unknown]
  - Cardioversion [Unknown]
  - Apparent death [Unknown]
  - Drug ineffective [Unknown]
  - Life support [Unknown]
  - Pain in extremity [Unknown]
  - Inappropriate schedule of drug administration [Unknown]
  - Wrong technique in device usage process [Unknown]
  - Dysgeusia [Not Recovered/Not Resolved]
  - Overdose [Unknown]
  - Hospitalisation [Unknown]
  - Feeling abnormal [Unknown]
  - Bone disorder [Unknown]
  - Tinnitus [Unknown]
  - Ill-defined disorder [Unknown]
  - Cough [Recovered/Resolved]
  - Dizziness [Unknown]
  - Malaise [Unknown]
  - Nausea [Unknown]
  - Confusional state [Unknown]
  - Wrong technique in product usage process [Unknown]
  - Paraesthesia oral [Unknown]
  - Dyspnoea [Unknown]
  - Middle insomnia [Unknown]
  - Aphonia [Not Recovered/Not Resolved]
  - Infection [Unknown]

NARRATIVE: CASE EVENT DATE: 20170403
